FAERS Safety Report 6592549-0 (Version None)
Quarter: 2010Q1

REPORT INFORMATION
  Report Type: 
  Country: None (occurrence: None)
  Receive Date: 20100221
  Receipt Date: 20091023
  Transmission Date: 20100710
  Serious: No
  Sender: FDA-Public Use
  Company Number: US-ALLERGAN-0914739US

PATIENT
  Sex: Female

DRUGS (1)
  1. BOTOX COSMETIC [Suspect]
     Indication: SKIN WRINKLING
     Dosage: UNK
     Route: 030
     Dates: start: 20091021, end: 20091021

REACTIONS (3)
  - HYPOAESTHESIA [None]
  - INJECTION SITE PALLOR [None]
  - WRONG TECHNIQUE IN DRUG USAGE PROCESS [None]
